FAERS Safety Report 6615553-2 (Version None)
Quarter: 2010Q1

REPORT INFORMATION
  Report Type: 
  Country: None (occurrence: None)
  Receive Date: 20100305
  Receipt Date: 20100205
  Transmission Date: 20100710
  Serious: No
  Sender: FDA-Public Use
  Company Number: US-BAYER-200933617NA

PATIENT
  Sex: Female
  Weight: 61 kg

DRUGS (1)
  1. MIRENA [Suspect]
     Indication: DRUG USE FOR UNKNOWN INDICATION
     Dosage: AS USED: 20 ?G
     Route: 015
     Dates: start: 20080301

REACTIONS (11)
  - ARTHRALGIA [None]
  - BACK PAIN [None]
  - BREAST MASS [None]
  - FATIGUE [None]
  - HYPERTRICHOSIS [None]
  - HYPOAESTHESIA [None]
  - NAUSEA [None]
  - NECK PAIN [None]
  - PAIN IN EXTREMITY [None]
  - SENSATION OF HEAVINESS [None]
  - WEIGHT INCREASED [None]
